FAERS Safety Report 19889333 (Version 1)
Quarter: 2021Q3

REPORT INFORMATION
  Report Type: Report from Study
  Country: US (occurrence: US)
  Receive Date: 20210928
  Receipt Date: 20210928
  Transmission Date: 20211014
  Serious: Yes (Hospitalization, Other)
  Sender: FDA-Public Use
  Company Number: NVSC2021US218717

PATIENT
  Sex: Female

DRUGS (1)
  1. PIQRAY [Suspect]
     Active Substance: ALPELISIB
     Indication: BREAST CANCER
     Dosage: 200 MG
     Route: 048

REACTIONS (3)
  - Hyperglycaemia [Recovering/Resolving]
  - Ketoacidosis [Recovering/Resolving]
  - Balance disorder [Recovering/Resolving]
